FAERS Safety Report 19922814 (Version 2)
Quarter: 2023Q4

REPORT INFORMATION
  Report Type: Spontaneous
  Country: US (occurrence: US)
  Receive Date: 20211005
  Receipt Date: 20231027
  Transmission Date: 20240110
  Serious: No
  Sender: FDA-Public Use
  Company Number: US-AVEO ONCOLOGY-2021-AVEO-US003486

PATIENT

DRUGS (14)
  1. FOTIVDA [Suspect]
     Active Substance: TIVOZANIB HYDROCHLORIDE
     Indication: Renal cell carcinoma
     Dosage: 0.89 MG, DAILY FOR 21 DAYS THEN 7 DAYS OFF
     Route: 048
     Dates: start: 20210722
  2. AMLODIPINE [Concomitant]
     Active Substance: AMLODIPINE BESYLATE
     Dosage: UNK
  3. ELIQUIS [Concomitant]
     Active Substance: APIXABAN
  4. ASCORBIC ACID [Concomitant]
     Active Substance: ASCORBIC ACID
  5. ASPIRIN [Concomitant]
     Active Substance: ASPIRIN
  6. ATORVASTATIN [Concomitant]
     Active Substance: ATORVASTATIN
  7. FERROUS SULFATE [Concomitant]
     Active Substance: FERROUS SULFATE
  8. LEVOTHYROXINE [Concomitant]
     Active Substance: LEVOTHYROXINE
  9. METOPROLOL [Concomitant]
     Active Substance: METOPROLOL
  10. TAMSULOSIN [Concomitant]
     Active Substance: TAMSULOSIN
  11. ZINC [Concomitant]
     Active Substance: PYRITHIONE ZINC\ZINC\ZINC CHLORIDE
  12. VITAMINS [Concomitant]
     Active Substance: VITAMINS
  13. LUPRON [Concomitant]
     Active Substance: LEUPROLIDE ACETATE
  14. FIRMAGON [Concomitant]
     Active Substance: DEGARELIX ACETATE

REACTIONS (5)
  - Pharyngitis [Unknown]
  - Vomiting [Unknown]
  - Dysphonia [Unknown]
  - Nausea [Unknown]
  - Fatigue [Unknown]
